FAERS Safety Report 14935893 (Version 2)
Quarter: 2018Q2

REPORT INFORMATION
  Report Type: Spontaneous
  Country: US (occurrence: US)
  Receive Date: 20180524
  Receipt Date: 20180606
  Transmission Date: 20180711
  Serious: Yes (Hospitalization, Other)
  Sender: FDA-Public Use
  Company Number: US-TEVA-2018-US-895036

PATIENT
  Age: 67 Year
  Sex: Female

DRUGS (9)
  1. SOLIFENACIN [Concomitant]
     Active Substance: SOLIFENACIN
     Route: 065
  2. ARIPIPRAZOLE. [Concomitant]
     Active Substance: ARIPIPRAZOLE
     Route: 065
  3. NABUMETONE. [Concomitant]
     Active Substance: NABUMETONE
     Dosage: AS NEEDED
     Route: 065
  4. FLUOXETINE [Suspect]
     Active Substance: FLUOXETINE HYDROCHLORIDE
     Indication: ANXIETY DISORDER
     Route: 065
  5. CLONAZEPAM. [Suspect]
     Active Substance: CLONAZEPAM
     Indication: ANXIETY DISORDER
     Route: 065
  6. VALSARTAN. [Concomitant]
     Active Substance: VALSARTAN
     Route: 065
  7. METOPROLOL. [Concomitant]
     Active Substance: METOPROLOL
     Route: 065
  8. SIMVASTATIN. [Concomitant]
     Active Substance: SIMVASTATIN
     Route: 065
  9. IMIPRAMINE [Concomitant]
     Active Substance: IMIPRAMINE
     Route: 065

REACTIONS (4)
  - Withdrawal syndrome [Recovered/Resolved]
  - Nodal rhythm [Unknown]
  - Stress cardiomyopathy [Recovered/Resolved]
  - Sinus arrest [Unknown]
